FAERS Safety Report 4850808-3 (Version None)
Quarter: 2005Q4

REPORT INFORMATION
  Report Type: 
  Country: None (occurrence: None)
  Receive Date: 20051208
  Receipt Date: 20051128
  Transmission Date: 20060501
  Serious: Yes (Other)
  Sender: FDA-Public Use
  Company Number: 2005162293

PATIENT
  Sex: Female
  Weight: 81.6475 kg

DRUGS (11)
  1. NEURONTIN [Suspect]
     Indication: NEUROPATHY
     Dosage: 2700 MG (900 MG, 3 IN 1 D), ORAL
     Route: 048
     Dates: start: 20000101
  2. LYRICA [Suspect]
     Indication: NEUROPATHY
     Dosage: 150 MG (50 MG, 3 IN 1 D), ORAL
     Route: 048
     Dates: start: 20051110, end: 20051111
  3. GABAPENTIN [Suspect]
     Indication: NEUROPATHY
     Dosage: 2700 (900 MG, 3 IN 1 D), ORAL
     Route: 048
     Dates: start: 20050916
  4. ALL OTHER THERAPEUTIC PRODUCTS (ALL OTHER THERAPEUTIC PRODUCTS) [Concomitant]
  5. POTASSIUM (POTASSIUM) [Concomitant]
  6. TYLENOL W/ CODEINE [Concomitant]
  7. VITAMINS (VITAMINS) [Concomitant]
  8. LEVOTHYROXINE SODIUM [Concomitant]
  9. FUROSEMIDE [Concomitant]
  10. RESTORIL [Concomitant]
  11. PREVACID [Concomitant]

REACTIONS (8)
  - BODY HEIGHT DECREASED [None]
  - CONDITION AGGRAVATED [None]
  - DRUG INTERACTION [None]
  - GRAFT COMPLICATION [None]
  - NEUROPATHY PERIPHERAL [None]
  - SKIN GRAFT [None]
  - SKIN IRRITATION [None]
  - THERMAL BURN [None]
